FAERS Safety Report 21286765 (Version 1)
Quarter: 2022Q3

REPORT INFORMATION
  Report Type: Spontaneous
  Country: US (occurrence: None)
  Receive Date: 20220902
  Receipt Date: 20220902
  Transmission Date: 20221027
  Serious: No
  Sender: FDA-Public Use
  Company Number: None

PATIENT

DRUGS (1)
  1. SUBOXONE [Suspect]
     Active Substance: BUPRENORPHINE HYDROCHLORIDE\NALOXONE HYDROCHLORIDE

REACTIONS (12)
  - Drug dependence [None]
  - Tooth loss [None]
  - Tooth fracture [None]
  - Tongue haemorrhage [None]
  - Oral infection [None]
  - Tongue injury [None]
  - Depression [None]
  - Economic problem [None]
  - Deformity [None]
  - Quality of life decreased [None]
  - Middle insomnia [None]
  - Drug monitoring procedure incorrectly performed [None]
